FAERS Safety Report 19196105 (Version 2)
Quarter: 2021Q2

REPORT INFORMATION
  Report Type: Report from Study
  Country: None (occurrence: US)
  Receive Date: 20210429
  Receipt Date: 20210510
  Transmission Date: 20210717
  Serious: Yes (Hospitalization, Other)
  Sender: FDA-Public Use
  Company Number: US-ABBVIE-21K-163-3882238-00

PATIENT
  Age: 93 Year
  Sex: Male
  Weight: 75.82 kg

DRUGS (11)
  1. CREON [Suspect]
     Active Substance: PANCRELIPASE AMYLASE\PANCRELIPASE LIPASE\PANCRELIPASE PROTEASE
     Indication: PANCREATIC FAILURE
     Dosage: 2 CAPSULES WITH MEALS
     Route: 048
     Dates: start: 202011
  2. TYLENOL [Concomitant]
     Active Substance: ACETAMINOPHEN
     Indication: PAIN
  3. CALCIUM [Concomitant]
     Active Substance: CALCIUM
     Indication: ARTHRITIS
  4. LISINOPRIL. [Concomitant]
     Active Substance: LISINOPRIL
     Indication: HYPERTENSION
  5. CALCIUM [Concomitant]
     Active Substance: CALCIUM
     Indication: SUPPLEMENTATION THERAPY
  6. PRAVASTATIN. [Concomitant]
     Active Substance: PRAVASTATIN
     Indication: BLOOD CHOLESTEROL
  7. TAMSULOSIN HYDROCHLORIDE. [Concomitant]
     Active Substance: TAMSULOSIN HYDROCHLORIDE
     Indication: PROSTATIC DISORDER
  8. PRIVIGEN [Concomitant]
     Active Substance: HUMAN IMMUNOGLOBULIN G
     Indication: MEMORY IMPAIRMENT
  9. NATURE^S SUNSHINE HERBAL [Concomitant]
     Indication: SUPPLEMENTATION THERAPY
  10. CETIRIZINE [Concomitant]
     Active Substance: CETIRIZINE HYDROCHLORIDE
     Indication: HYPERSENSITIVITY
  11. CALCIUM [Concomitant]
     Active Substance: CALCIUM
     Indication: MUSCLE SPASMS

REACTIONS (4)
  - Pyrexia [Recovered/Resolved]
  - Cystitis [Recovered/Resolved]
  - Constipation [Recovered/Resolved]
  - Dysuria [Recovered/Resolved]

NARRATIVE: CASE EVENT DATE: 202011
